FAERS Safety Report 24863840 (Version 1)
Quarter: 2025Q1

REPORT INFORMATION
  Report Type: Spontaneous
  Country: US (occurrence: US)
  Receive Date: 20250120
  Receipt Date: 20250120
  Transmission Date: 20250409
  Serious: No
  Sender: Phathom Pharmaceuticals
  Company Number: US-PHATHOM PHARMACEUTICALS INC.-2024PHT01173

PATIENT
  Age: 58 Year
  Sex: Female

DRUGS (15)
  1. VOQUEZNA [Suspect]
     Active Substance: VONOPRAZAN FUMARATE
     Dosage: 10 MG, 1X/DAY
     Route: 048
     Dates: start: 20241016, end: 20241021
  2. UNSPECIFIED INGREDIENT [Suspect]
     Active Substance: UNSPECIFIED INGREDIENT
  3. CLOZAPINE [Concomitant]
     Active Substance: CLOZAPINE
  4. ATORVASTATIN [Concomitant]
     Active Substance: ATORVASTATIN
  5. TRULANCE [Concomitant]
     Active Substance: PLECANATIDE
  6. COLACE [Concomitant]
     Active Substance: DOCUSATE SODIUM
  7. CALCIUM [Concomitant]
     Active Substance: CALCIUM
  8. ASPIRIN [Concomitant]
     Active Substance: ASPIRIN
  9. WIXELA INHUB [Concomitant]
     Active Substance: FLUTICASONE PROPIONATE\SALMETEROL XINAFOATE
  10. LEVOTHYROXINE [Concomitant]
     Active Substance: LEVOTHYROXINE
  11. LAMOTRIGINE [Concomitant]
     Active Substance: LAMOTRIGINE
  12. VITAMINS [Concomitant]
     Active Substance: VITAMINS
  13. LITHIUM CARBONATE [Concomitant]
     Active Substance: LITHIUM CARBONATE
  14. SPIRIVA RESPIMAT [Concomitant]
     Active Substance: TIOTROPIUM BROMIDE
  15. VITAMIN D3 [Concomitant]
     Active Substance: CHOLECALCIFEROL

REACTIONS (2)
  - Weight increased [Unknown]
  - Nausea [Recovered/Resolved]

NARRATIVE: CASE EVENT DATE: 20241001
